FAERS Safety Report 17335078 (Version 6)
Quarter: 2025Q2

REPORT INFORMATION
  Report Type: Report from Study
  Country: BR (occurrence: BR)
  Receive Date: 20200128
  Receipt Date: 20250619
  Transmission Date: 20250716
  Serious: Yes (Other)
  Sender: TAKEDA
  Company Number: BR-TAKEDA-2017TUS000782

PATIENT
  Age: 65 Year
  Sex: Female

DRUGS (6)
  1. VEDOLIZUMAB [Suspect]
     Active Substance: VEDOLIZUMAB
     Indication: Colitis ulcerative
  2. VEDOLIZUMAB [Suspect]
     Active Substance: VEDOLIZUMAB
     Dosage: 300 MILLIGRAM, Q4WEEKS
     Dates: start: 20180607, end: 20191121
  3. VEDOLIZUMAB [Suspect]
     Active Substance: VEDOLIZUMAB
     Dosage: 300 MILLIGRAM, Q4WEEKS
  4. PROMETHAZINE HYDROCHLORIDE [Suspect]
     Active Substance: PROMETHAZINE HYDROCHLORIDE
     Indication: Premedication
  5. MESALAMINE [Concomitant]
     Active Substance: MESALAMINE
     Indication: Colitis ulcerative
     Dosage: 1600 MILLIGRAM, BID
  6. CHLORAMPHENICOL\PREDNISOLONE [Concomitant]
     Active Substance: CHLORAMPHENICOL\PREDNISOLONE
     Dosage: UNK UNK, QD

REACTIONS (6)
  - Colitis ulcerative [Recovering/Resolving]
  - Somnolence [Recovered/Resolved]
  - Gastrointestinal bacterial infection [Unknown]
  - Inappropriate schedule of product administration [Unknown]
  - Arthritis [Unknown]
  - Treatment failure [Unknown]

NARRATIVE: CASE EVENT DATE: 20170103
